FAERS Safety Report 13120054 (Version 2)
Quarter: 2017Q1

REPORT INFORMATION
  Report Type: Spontaneous
  Country: ZA (occurrence: ZA)
  Receive Date: 20170117
  Receipt Date: 20170117
  Transmission Date: 20170428
  Serious: Yes (Hospitalization)
  Sender: FDA-Public Use
  Company Number: ZA-GLENMARK PHARMACEUTICALS-2017GMK025787

PATIENT
  Age: 6 Year
  Sex: Male

DRUGS (2)
  1. AMPHOTERICIN B. [Suspect]
     Active Substance: AMPHOTERICIN B
     Indication: CRYPTOCOCCOSIS
     Dosage: 0.5 MG/KG, UNK
     Route: 065
  2. FLUCONAZOLE. [Suspect]
     Active Substance: FLUCONAZOLE
     Indication: CRYPTOCOCCOSIS
     Dosage: 13-25 MG/KG, UNK
     Route: 065

REACTIONS (3)
  - Drug ineffective [Unknown]
  - Cryptococcosis [Unknown]
  - Obstructive airways disorder [Unknown]
